FAERS Safety Report 21044751 (Version 5)
Quarter: 2022Q4

REPORT INFORMATION
  Report Type: Spontaneous
  Country: IN (occurrence: IN)
  Receive Date: 20220705
  Receipt Date: 20221229
  Transmission Date: 20230112
  Serious: Yes (Other)
  Sender: FDA-Public Use
  Company Number: IN-PFIZER INC-202200132705

PATIENT
  Age: 60 Year
  Sex: Male

DRUGS (2)
  1. SUTENT [Suspect]
     Active Substance: SUNITINIB MALATE
     Indication: Metastatic renal cell carcinoma
     Dosage: 50 MG, 1X/DAY(2 WEEKS ON 1 WEEK OFF)
     Route: 048
     Dates: start: 20211005
  2. SUTENT [Suspect]
     Active Substance: SUNITINIB MALATE
     Dosage: 37.5 MG, CYCLIC (ONCE IN DAY, 2 WEEKS ON AND 1 WEEK OFF)
     Route: 048

REACTIONS (13)
  - Thrombosis [Recovered/Resolved]
  - Haemoglobin decreased [Unknown]
  - Product dispensing error [Unknown]
  - Blister [Recovered/Resolved]
  - Oropharyngeal pain [Unknown]
  - Haematuria [Unknown]
  - Bone lesion [Unknown]
  - Decreased appetite [Unknown]
  - Gait inability [Unknown]
  - Vomiting [Unknown]
  - Mouth ulceration [Unknown]
  - Glycosylated haemoglobin abnormal [Unknown]
  - Urinary occult blood [Unknown]

NARRATIVE: CASE EVENT DATE: 20220104
